FAERS Safety Report 23946074 (Version 1)
Quarter: 2024Q2

REPORT INFORMATION
  Report Type: Spontaneous
  Country: US (occurrence: None)
  Receive Date: 20240605
  Receipt Date: 20240605
  Transmission Date: 20240716
  Serious: Yes (Other)
  Sender: FDA-Public Use
  Company Number: None

PATIENT
  Age: 74 Year
  Sex: Female
  Weight: 87.3 kg

DRUGS (12)
  1. CYCLOBENZAPRINE HYDROCHLORIDE [Suspect]
     Active Substance: CYCLOBENZAPRINE HYDROCHLORIDE
     Indication: Muscle relaxant therapy
     Dosage: OTHER QUANTITY : 1 TABLET(S);?FREQUENCY : AT BEDTIME;?
     Route: 048
  2. VITAMINS [Concomitant]
     Active Substance: VITAMINS
  3. MAGNESIUM [Concomitant]
     Active Substance: MAGNESIUM
  4. CALCIUM [Concomitant]
     Active Substance: CALCIUM
  5. VITAMIN D [Concomitant]
     Active Substance: VITAMIN D NOS
  6. VITAMIN C [Concomitant]
     Active Substance: ASCORBIC ACID
  7. GLUCOSAMINE [Concomitant]
     Active Substance: GLUCOSAMINE
  8. ACYCLOVIR [Concomitant]
     Active Substance: ACYCLOVIR
  9. SYNTHROID [Concomitant]
     Active Substance: LEVOTHYROXINE SODIUM
  10. hydrochlorthalizide [Concomitant]
  11. ATENOLOL [Concomitant]
     Active Substance: ATENOLOL
  12. POTASSIUM [Concomitant]
     Active Substance: POTASSIUM

REACTIONS (2)
  - Muscle spasms [None]
  - Somnolence [None]

NARRATIVE: CASE EVENT DATE: 20240515
